FAERS Safety Report 20869587 (Version 1)
Quarter: 2022Q2

REPORT INFORMATION
  Report Type: Spontaneous
  Country: US (occurrence: US)
  Receive Date: 20220525
  Receipt Date: 20220525
  Transmission Date: 20220721
  Serious: No
  Sender: FDA-Public Use
  Company Number: US-PCCINC-2022-PEL-000232

PATIENT

DRUGS (1)
  1. GABLOFEN [Suspect]
     Active Substance: BACLOFEN
     Indication: Pain
     Dosage: 174.8 MICROGRAM/ DAY
     Route: 037

REACTIONS (2)
  - Underdose [Recovered/Resolved]
  - Catheter site extravasation [Recovered/Resolved]
